FAERS Safety Report 7149159-6 (Version None)
Quarter: 2010Q4

REPORT INFORMATION
  Report Type: 
  Country: None (occurrence: None)
  Receive Date: 20101209
  Receipt Date: 20101130
  Transmission Date: 20110411
  Serious: Yes (Other)
  Sender: FDA-Public Use
  Company Number: JP-ROCHE-746486

PATIENT
  Sex: Male
  Weight: 57 kg

DRUGS (19)
  1. BEVACIZUMAB [Suspect]
     Indication: COLON CANCER
     Route: 041
     Dates: start: 20100603, end: 20100603
  2. BEVACIZUMAB [Suspect]
     Route: 041
     Dates: start: 20100706, end: 20100706
  3. BEVACIZUMAB [Suspect]
     Route: 041
     Dates: start: 20100727, end: 20100727
  4. BEVACIZUMAB [Suspect]
     Route: 041
     Dates: start: 20101019, end: 20101019
  5. BEVACIZUMAB [Suspect]
     Route: 041
     Dates: start: 20101109, end: 20101109
  6. CAPECITABINE [Suspect]
     Indication: COLON CANCER
     Route: 048
     Dates: start: 20100603, end: 20100617
  7. CAPECITABINE [Suspect]
     Route: 048
     Dates: start: 20100706, end: 20100720
  8. CAPECITABINE [Suspect]
     Route: 048
     Dates: start: 20100727, end: 20100810
  9. CAPECITABINE [Suspect]
     Route: 048
     Dates: start: 20101019, end: 20101102
  10. CAPECITABINE [Suspect]
     Route: 048
     Dates: start: 20101109, end: 20101116
  11. OXALIPLATIN [Suspect]
     Indication: COLON CANCER
     Route: 041
     Dates: start: 20100603, end: 20100603
  12. OXALIPLATIN [Suspect]
     Route: 041
     Dates: start: 20100706, end: 20100706
  13. OXALIPLATIN [Suspect]
     Route: 041
     Dates: start: 20100727, end: 20100727
  14. OXALIPLATIN [Suspect]
     Route: 041
     Dates: start: 20101109, end: 20101109
  15. URSO 250 [Concomitant]
     Dosage: PERORAL AGENT
     Route: 048
  16. MAGMITT [Concomitant]
     Dosage: PERORAL AGENT
     Route: 048
  17. ALDACTONE [Concomitant]
     Dosage: PERORAL AGENT
     Route: 048
  18. TEPRENONE [Concomitant]
     Route: 048
  19. GLIMICRON [Concomitant]
     Route: 048

REACTIONS (1)
  - DUODENAL ULCER [None]
